FAERS Safety Report 25947394 (Version 1)
Quarter: 2025Q4

REPORT INFORMATION
  Report Type: Spontaneous
  Country: GB (occurrence: GB)
  Receive Date: 20251022
  Receipt Date: 20251022
  Transmission Date: 20260118
  Serious: Yes (Other)
  Sender: TEVA
  Company Number: GB-GSKCCFEMEA-Case-01932991_AE-81270

PATIENT
  Age: 56 Year
  Sex: Female
  Weight: 128 kg

DRUGS (11)
  1. QUETIAPINE [Suspect]
     Active Substance: QUETIAPINE
     Indication: Product used for unknown indication
     Dosage: UNK
     Route: 065
  2. LAMOTRIGINE [Concomitant]
     Active Substance: LAMOTRIGINE
     Indication: Product used for unknown indication
  3. CARBAMAZEPINE [Concomitant]
     Active Substance: CARBAMAZEPINE
     Indication: Product used for unknown indication
     Dates: start: 202502
  4. PAROXETINE HYDROCHLORIDE [Suspect]
     Active Substance: PAROXETINE HYDROCHLORIDE
     Indication: Depression
     Dosage: 20 MG
     Route: 048
  5. DIAZEPAM [Concomitant]
     Active Substance: DIAZEPAM
     Indication: Product used for unknown indication
     Dosage: TIME INTERVAL: AS NECESSARY
  6. FEXOFENADINE [Concomitant]
     Active Substance: FEXOFENADINE HYDROCHLORIDE
     Indication: Product used for unknown indication
  7. FLUOXETINE [Concomitant]
     Active Substance: FLUOXETINE HYDROCHLORIDE
     Indication: Product used for unknown indication
  8. FLUOXETINE [Concomitant]
     Active Substance: FLUOXETINE HYDROCHLORIDE
     Indication: Product used for unknown indication
  9. OLANZAPINE [Concomitant]
     Active Substance: OLANZAPINE
     Indication: Product used for unknown indication
  10. LOFEPRAMIN [Concomitant]
     Indication: Product used for unknown indication
     Dosage: MORNING AND NIGHT
  11. LITHIUM CARBONATE [Concomitant]
     Active Substance: LITHIUM CARBONATE
     Indication: Product used for unknown indication
     Dosage: NIGHT

REACTIONS (18)
  - Suicide attempt [Unknown]
  - Visual impairment [Unknown]
  - Psychiatric symptom [Unknown]
  - Abortion induced [Unknown]
  - Personality change [Unknown]
  - Neck pain [Unknown]
  - Overdose [Unknown]
  - Dysphagia [Unknown]
  - Bipolar disorder [Unknown]
  - Throat tightness [Unknown]
  - Maternal exposure during pregnancy [Unknown]
  - Panic attack [Unknown]
  - Hypoaesthesia oral [Unknown]
  - Loss of personal independence in daily activities [Unknown]
  - Back pain [Unknown]
  - Promiscuity [Unknown]
  - Adverse drug reaction [Unknown]
  - Psychotic disorder [Unknown]
